FAERS Safety Report 18447343 (Version 1)
Quarter: 2020Q4

REPORT INFORMATION
  Report Type: Spontaneous
  Country: US (occurrence: US)
  Receive Date: 20201030
  Receipt Date: 20201030
  Transmission Date: 20210114
  Serious: Yes (Hospitalization)
  Sender: FDA-Public Use
  Company Number: None

PATIENT
  Sex: Male

DRUGS (10)
  1. CYMBALSTA [Concomitant]
  2. LORAZEPAM. [Concomitant]
     Active Substance: LORAZEPAM
  3. SIMVASTATIN. [Concomitant]
     Active Substance: SIMVASTATIN
  4. VIT B1 [Concomitant]
     Active Substance: THIAMINE HYDROCHLORIDE
  5. MAYZENT [Suspect]
     Active Substance: SIPONIMOD
     Indication: MULTIPLE SCLEROSIS
     Route: 048
     Dates: start: 20200305
  6. NIFEDIPINE. [Concomitant]
     Active Substance: NIFEDIPINE
  7. MULTIVITAMIN [Concomitant]
     Active Substance: VITAMINS
  8. EPINEPHRINE. [Concomitant]
     Active Substance: EPINEPHRINE
  9. MELATONIN [Concomitant]
     Active Substance: MELATONIN
  10. TRAZODONE [Concomitant]
     Active Substance: TRAZODONE HYDROCHLORIDE

REACTIONS (3)
  - Asthenia [None]
  - Arthralgia [None]
  - Pain in extremity [None]
